FAERS Safety Report 8883480 (Version 2)
Quarter: 2013Q1

REPORT INFORMATION
  Report Type: Spontaneous
  Country: US (occurrence: US)
  Receive Date: 20121102
  Receipt Date: 20130326
  Transmission Date: 20140127
  Serious: No
  Sender: FDA-Public Use
  Company Number: US-ASTRAZENECA-2012SE04925

PATIENT
  Age: 51 Year
  Sex: Female
  Weight: 54.4 kg

DRUGS (3)
  1. CRESTOR [Suspect]
     Indication: HYPERCHOLESTEROLAEMIA
     Route: 048
  2. CRESTOR [Suspect]
     Indication: CORONARY ARTERY OCCLUSION
     Route: 048
  3. TONS OF MEDICINES [Concomitant]

REACTIONS (3)
  - Nasopharyngitis [Unknown]
  - Drug dose omission [Unknown]
  - Drug effect incomplete [Unknown]
